FAERS Safety Report 14583202 (Version 4)
Quarter: 2018Q2

REPORT INFORMATION
  Report Type: Spontaneous
  Country: JP (occurrence: JP)
  Receive Date: 20180228
  Receipt Date: 20180524
  Transmission Date: 20180711
  Serious: Yes (Hospitalization)
  Sender: FDA-Public Use
  Company Number: JP-CELGENEUS-JPN-20180207575

PATIENT
  Age: 75 Year
  Sex: Female
  Weight: 38 kg

DRUGS (25)
  1. VENETOCLAX. [Suspect]
     Active Substance: VENETOCLAX
     Dosage: 400 MILLIGRAM
     Route: 048
     Dates: start: 20170623, end: 20180209
  2. MINODRONIC ACID [Concomitant]
     Active Substance: MINODRONIC ACID
     Indication: OSTEOPOROSIS
     Dosage: 50 MILLIGRAM
     Route: 048
     Dates: start: 20120901
  3. ACYCLOVIR. [Concomitant]
     Active Substance: ACYCLOVIR
     Indication: ORAL HERPES
     Dosage: 600 MILLIGRAM
     Route: 048
     Dates: start: 20170612
  4. AZACITIDINE. [Suspect]
     Active Substance: AZACITIDINE
     Indication: HAEMATOLOGICAL MALIGNANCY
     Dosage: 75 MILLIGRAM/SQ. METER
     Route: 041
     Dates: start: 20170619
  5. VENETOCLAX. [Suspect]
     Active Substance: VENETOCLAX
     Dosage: 400 MILLIGRAM
     Route: 048
     Dates: start: 20180303
  6. MOSAPRIDE CITRATE [Concomitant]
     Active Substance: MOSAPRIDE CITRATE
     Indication: ULCER
     Dosage: 15 MILLIGRAM
     Route: 048
     Dates: start: 20150409, end: 20180210
  7. SODIUM GUALENATE [Concomitant]
     Active Substance: SODIUM GUALENATE
     Indication: INFECTION
     Route: 065
     Dates: start: 20170604
  8. VIDARABINE [Concomitant]
     Active Substance: VIDARABINE
     Indication: ORAL HERPES
     Route: 061
     Dates: start: 20170611
  9. MAGNESIUM OXIDE. [Concomitant]
     Active Substance: MAGNESIUM OXIDE
     Indication: CONSTIPATION
     Dosage: 1500 MILLIGRAM
     Route: 048
     Dates: start: 20170625
  10. MOMETASONE FUROATE. [Concomitant]
     Active Substance: MOMETASONE FUROATE
     Indication: RHINITIS ALLERGIC
     Dosage: 200 MICROGRAM
     Route: 045
     Dates: start: 20171227
  11. ALFACALCIDOL [Concomitant]
     Active Substance: ALFACALCIDOL
     Indication: OSTEOPOROSIS
     Dosage: 1 MICROGRAM
     Route: 048
     Dates: start: 20120901
  12. AMLODIPINE BESYLATE. [Concomitant]
     Active Substance: AMLODIPINE BESYLATE
     Indication: HYPERTENSION
     Dosage: 5 MILLIGRAM
     Route: 048
     Dates: start: 20110508
  13. CLOSTRIDIUM BUTYRICUM [Concomitant]
     Active Substance: CLOSTRIDIUM BUTYRICUM SPORES STRAIN M-55
     Indication: FUNCTIONAL GASTROINTESTINAL DISORDER
     Dosage: 6 TABLET
     Route: 048
     Dates: start: 20170606
  14. BROMFENAC SODIUM [Concomitant]
     Active Substance: BROMFENAC SODIUM
     Indication: CONJUNCTIVITIS ALLERGIC
     Dosage: 2 DROPS
     Route: 047
     Dates: start: 20171218
  15. OLOPATADINE HYDROCHLORIDE. [Concomitant]
     Active Substance: OLOPATADINE HYDROCHLORIDE
     Indication: CONJUNCTIVITIS ALLERGIC
     Dosage: 3 DROPS
     Route: 047
     Dates: start: 20170415
  16. VENETOCLAX. [Suspect]
     Active Substance: VENETOCLAX
     Indication: HAEMATOLOGICAL MALIGNANCY
     Dosage: 100 MILLIGRAM
     Route: 048
     Dates: start: 20170620, end: 20170620
  17. REBAMIPIDE [Concomitant]
     Active Substance: REBAMIPIDE
     Indication: ULCER
     Dosage: 300 MILLIGRAM
     Route: 048
     Dates: start: 20151205, end: 20180210
  18. BROMFENAC SODIUM [Concomitant]
     Active Substance: BROMFENAC SODIUM
     Dosage: 2 DROPS
     Route: 047
     Dates: start: 20170720
  19. METOCLOPRAMIDE HYDROCHLORIDE. [Concomitant]
     Active Substance: METOCLOPRAMIDE HYDROCHLORIDE
     Indication: PROPHYLAXIS OF NAUSEA AND VOMITING
     Dosage: 5 MILLIGRAM
     Route: 048
     Dates: start: 20170701
  20. VENETOCLAX. [Suspect]
     Active Substance: VENETOCLAX
     Dosage: 200 MILLIGRAM
     Route: 048
     Dates: start: 20170622, end: 20170622
  21. POLAPREZINC [Concomitant]
     Active Substance: POLAPREZINC
     Indication: ULCER
     Dosage: 150 MILLIGRAM
     Route: 048
     Dates: start: 20110808
  22. LIMAPROST ALFADEX [Concomitant]
     Active Substance: LIMAPROST
     Indication: SPINAL OSTEOARTHRITIS
     Dosage: 10 MICROGRAM
     Route: 048
     Dates: start: 20120718, end: 20180210
  23. DEXPANTHENOL. [Concomitant]
     Active Substance: DEXPANTHENOL
     Indication: CONSTIPATION
     Dosage: 1000 MILLIGRAM
     Route: 041
     Dates: start: 20170621
  24. HYALURONATE SODIUM [Concomitant]
     Active Substance: HYALURONATE SODIUM
     Indication: DRY EYE
     Dosage: 1 DROPS
     Route: 047
     Dates: start: 20170415
  25. CASPOFUNGIN ACETATE. [Concomitant]
     Active Substance: CASPOFUNGIN ACETATE
     Indication: FUNGAL INFECTION
     Dosage: 50 MILLIGRAM
     Route: 041
     Dates: start: 20170612

REACTIONS (1)
  - Gastritis [Recovered/Resolved]

NARRATIVE: CASE EVENT DATE: 20180209
